FAERS Safety Report 20364635 (Version 2)
Quarter: 2022Q1

REPORT INFORMATION
  Report Type: Other
  Country: US (occurrence: US)
  Receive Date: 20220122
  Receipt Date: 20220201
  Transmission Date: 20220423
  Serious: No
  Sender: FDA-Public Use
  Company Number: US-Covis Pharma GmbH-2021COV25043

PATIENT
  Age: 25 Year
  Sex: Female

DRUGS (1)
  1. MAKENA [Suspect]
     Active Substance: HYDROXYPROGESTERONE CAPROATE
     Indication: Premature delivery
     Route: 058
     Dates: start: 20211220, end: 20220103

REACTIONS (5)
  - Crying [Unknown]
  - Limb discomfort [Unknown]
  - Swelling [Unknown]
  - Injection site pain [Unknown]
  - Depression [Unknown]

NARRATIVE: CASE EVENT DATE: 20211220
